FAERS Safety Report 21544272 (Version 4)
Quarter: 2023Q1

REPORT INFORMATION
  Report Type: Spontaneous
  Country: US (occurrence: US)
  Receive Date: 20221102
  Receipt Date: 20230119
  Transmission Date: 20230418
  Serious: Yes (Other)
  Sender: FDA-Public Use
  Company Number: US-Calliditas-2022CAL00433

PATIENT
  Age: 61 Year
  Sex: Male

DRUGS (5)
  1. TARPEYO [Suspect]
     Active Substance: BUDESONIDE
     Indication: Haematuria
     Dosage: 16MG (4MG CAPSULES) DAILY
     Route: 048
     Dates: start: 20220622
  2. FISH OIL [Concomitant]
     Active Substance: FISH OIL
  3. VITAMIN C [Concomitant]
     Active Substance: ASCORBIC ACID
  4. VITAMIN B COMPLEX [CYANOCOBALAMIN] [Concomitant]
  5. MAGNESIUM [MAGNESIUM HYDROXIDE] [Concomitant]

REACTIONS (7)
  - Fatigue [Recovered/Resolved]
  - Dental caries [Unknown]
  - Neoplasm malignant [Recovered/Resolved]
  - Prescribed underdose [Unknown]
  - Focal segmental glomerulosclerosis [Unknown]
  - Tooth extraction [Unknown]
  - Condition aggravated [Recovered/Resolved]
